FAERS Safety Report 10645246 (Version 1)
Quarter: 2014Q4

REPORT INFORMATION
  Report Type: Spontaneous
  Country: US (occurrence: None)
  Receive Date: 20141202
  Receipt Date: 20141202
  Transmission Date: 20150529
  Serious: No
  Sender: FDA-Public Use
  Company Number: TPA2013A06922

PATIENT
  Age: 55 Year
  Sex: Male

DRUGS (6)
  1. AXERON(TESTOSTERONE) [Concomitant]
  2. ATORVASTATIN(ATORVASTATIN) [Concomitant]
  3. LOSARTAN(LOSARTAN) [Concomitant]
     Active Substance: LOSARTAN
  4. ASPIRIN(ACETYLSALICYLIC ACID) [Concomitant]
     Active Substance: ASPIRIN
  5. NESINA [Suspect]
     Active Substance: ALOGLIPTIN BENZOATE
     Indication: DIABETES MELLITUS
     Route: 048
     Dates: start: 20130715, end: 20130717
  6. METOPROLOL(METOPROLOL) [Concomitant]

REACTIONS (1)
  - Headache [None]

NARRATIVE: CASE EVENT DATE: 20130717
